FAERS Safety Report 23811364 (Version 1)
Quarter: 2024Q2

REPORT INFORMATION
  Report Type: Spontaneous
  Country: NL (occurrence: NL)
  Receive Date: 20240503
  Receipt Date: 20240503
  Transmission Date: 20240715
  Serious: Yes (Hospitalization)
  Sender: FDA-Public Use
  Company Number: None

PATIENT
  Age: 74 Year
  Sex: Male
  Weight: 42.7 kg

DRUGS (9)
  1. LINEZOLID [Suspect]
     Active Substance: LINEZOLID
     Indication: Enterococcal infection
     Dosage: 1 PIECE TWICE A DAY, BRAND NAME NOT SPECIFIED
     Route: 065
     Dates: start: 20240312, end: 20240326
  2. METHADONE [Concomitant]
     Active Substance: METHADONE HYDROCHLORIDE
     Indication: Product used for unknown indication
     Dosage: DRINK, 5 MG/ML (MILLIGRAM PER MILLILITER), 5MG/ML (HCL) / BRAND NAME NOT SPECIFIED
  3. TAMSULOSIN HYDROCHLORIDE [Concomitant]
     Active Substance: TAMSULOSIN HYDROCHLORIDE
     Indication: Product used for unknown indication
     Dosage: MODIFIED-RELEASE CAPSULE, 0.4 MG (MILLIGRAM), BRAND NAME NOT SPECIFIED
     Route: 065
  4. HALOPERIDOL [Concomitant]
     Active Substance: HALOPERIDOL
     Indication: Product used for unknown indication
     Dosage: 1 MG TABLET, BRAND NAME NOT SPECIFIED
     Route: 065
  5. PERINDOPRIL ERBUMINE [Concomitant]
     Active Substance: PERINDOPRIL ERBUMINE
     Dosage: TABLET, 4 MG (MILLIGRAM), TABLET 4MG (ERBUMINE) / BRAND NAME NOT SPECIFIED
  6. ACETAMINOPHEN [Concomitant]
     Active Substance: ACETAMINOPHEN
     Indication: Product used for unknown indication
     Dosage: TABLET, 500 MG (MILLIGRAM)
     Route: 065
  7. CHOLECALCIFEROL [Concomitant]
     Active Substance: CHOLECALCIFEROL
     Indication: Product used for unknown indication
     Dosage: ORAL SOLUTION, 100000 IU/ML (UNITS PER MILLILITER), 100,000IE/ML / BRAND NAME NOT SPECIFIED
     Route: 065
  8. ALLOPURINOL [Concomitant]
     Active Substance: ALLOPURINOL
     Indication: Product used for unknown indication
     Dosage: TABLET, 300 MG (MILLIGRAM), BRAND NAME NOT SPECIFIED
     Route: 065
  9. DUTASTERIDE [Concomitant]
     Active Substance: DUTASTERIDE
     Indication: Product used for unknown indication
     Dosage: CAPSULE, 0,5 MG (MILLIGRAM), BRAND NAME NOT SPECIFIED
     Route: 065

REACTIONS (1)
  - Delirium [Not Recovered/Not Resolved]
